FAERS Safety Report 13494812 (Version 1)
Quarter: 2017Q2

REPORT INFORMATION
  Report Type: Spontaneous
  Country: US (occurrence: US)
  Receive Date: 20170428
  Receipt Date: 20170428
  Transmission Date: 20170830
  Serious: No
  Sender: FDA-Public Use
  Company Number: US-PFIZER INC-2017181362

PATIENT
  Sex: Female

DRUGS (1)
  1. XELJANZ [Suspect]
     Active Substance: TOFACITINIB CITRATE
     Indication: ALOPECIA UNIVERSALIS
     Dosage: 15 MG, DAILY

REACTIONS (9)
  - Tendon rupture [Unknown]
  - Blood glucose increased [Unknown]
  - Product use in unapproved indication [Unknown]
  - Off label use [Unknown]
  - Hand dermatitis [Unknown]
  - Skin fissures [Unknown]
  - Weight increased [Unknown]
  - Nail disorder [Unknown]
  - Arthralgia [Unknown]
